FAERS Safety Report 17245710 (Version 1)
Quarter: 2020Q1

REPORT INFORMATION
  Report Type: Spontaneous
  Country: IT (occurrence: IT)
  Receive Date: 20200108
  Receipt Date: 20200108
  Transmission Date: 20200409
  Serious: Yes (Other)
  Sender: FDA-Public Use
  Company Number: IT-TEVA-2020-IT-1164518

PATIENT
  Age: 58 Year
  Sex: Female
  Weight: 62 kg

DRUGS (2)
  1. CARBOPLATIN. [Suspect]
     Active Substance: CARBOPLATIN
     Indication: MALIGNANT PERITONEAL NEOPLASM
     Dosage: 700 MILLIGRAM EVERY 1 CYCLICAL
     Route: 042
     Dates: start: 20190820, end: 20191110
  2. PACLITAXEL. [Suspect]
     Active Substance: PACLITAXEL
     Indication: MALIGNANT PERITONEAL NEOPLASM
     Dosage: 300 MILLIGRAM EVERY 1 CYCLICAL
     Route: 042
     Dates: start: 20190820, end: 20191111

REACTIONS (4)
  - Alopecia [Unknown]
  - Febrile neutropenia [Unknown]
  - Anaemia [Unknown]
  - Neuropathy peripheral [Unknown]

NARRATIVE: CASE EVENT DATE: 20191203
